FAERS Safety Report 5196098-6 (Version None)
Quarter: 2007Q1

REPORT INFORMATION
  Report Type: 
  Country: None (occurrence: None)
  Receive Date: 20070102
  Receipt Date: 20061228
  Transmission Date: 20070707
  Serious: Yes (Hospitalization, Other)
  Sender: FDA-Public Use
  Company Number: PHHO2005AR19168

PATIENT
  Age: 70 Year
  Sex: Female

DRUGS (1)
  1. ZELMAC / HTF 919A [Suspect]
     Indication: CONSTIPATION
     Dosage: UNK, QD
     Route: 048
     Dates: start: 20050101

REACTIONS (4)
  - DEPRESSION [None]
  - DIABETES MELLITUS [None]
  - DIALYSIS [None]
  - FIBROMA [None]
